FAERS Safety Report 21353311 (Version 5)
Quarter: 2023Q1

REPORT INFORMATION
  Report Type: Other
  Country: CA (occurrence: None)
  Receive Date: 20220920
  Receipt Date: 20230314
  Transmission Date: 20230417
  Serious: Yes (Hospitalization)
  Sender: FDA-Public Use
  Company Number: CA-ROCHE-2483634

PATIENT
  Age: 46 Year
  Sex: Male
  Weight: 78 kg

DRUGS (14)
  1. ACTEMRA [Suspect]
     Active Substance: TOCILIZUMAB
     Indication: Still^s disease
     Route: 042
     Dates: start: 20190829, end: 20210210
  2. ACTEMRA [Suspect]
     Active Substance: TOCILIZUMAB
     Route: 042
     Dates: start: 20210311, end: 20210311
  3. ACTEMRA [Suspect]
     Active Substance: TOCILIZUMAB
     Route: 042
     Dates: start: 20210325, end: 20221019
  4. ACTEMRA [Suspect]
     Active Substance: TOCILIZUMAB
     Route: 042
     Dates: start: 20221117, end: 20230112
  5. ACTEMRA [Suspect]
     Active Substance: TOCILIZUMAB
     Route: 042
     Dates: start: 20230309
  6. ASPIRIN [Concomitant]
     Active Substance: ASPIRIN
     Indication: Product used for unknown indication
  7. CALCIUM [Concomitant]
     Active Substance: CALCIUM
     Indication: Premedication
  8. CLINDAMYCIN [Concomitant]
     Active Substance: CLINDAMYCIN
     Route: 061
  9. KETOCONAZOLE [Concomitant]
     Active Substance: KETOCONAZOLE
     Route: 061
  10. METOPROLOL [Concomitant]
     Active Substance: METOPROLOL
  11. PANTOPRAZOLE [Concomitant]
     Active Substance: PANTOPRAZOLE
  12. RISEDRONATE SODIUM [Concomitant]
     Active Substance: RISEDRONATE SODIUM
  13. PREDNISONE [Concomitant]
     Active Substance: PREDNISONE
     Route: 048
  14. TICAGRELOR [Concomitant]
     Active Substance: TICAGRELOR

REACTIONS (17)
  - Blood pressure increased [Unknown]
  - Off label use [Unknown]
  - Blood pressure systolic increased [Unknown]
  - Headache [Recovered/Resolved]
  - Weight increased [Recovering/Resolving]
  - Blood pressure diastolic abnormal [Unknown]
  - Blood pressure diastolic increased [Unknown]
  - Herpes zoster disseminated [Recovered/Resolved]
  - Dizziness [Recovered/Resolved]
  - Discomfort [Recovered/Resolved]
  - Blood pressure systolic abnormal [Unknown]
  - Weight decreased [Unknown]
  - Peripheral swelling [Unknown]
  - Burning sensation [Unknown]
  - Oedema peripheral [Unknown]
  - Erythema [Unknown]
  - Movement disorder [Unknown]

NARRATIVE: CASE EVENT DATE: 20191223
